FAERS Safety Report 7765098-1 (Version None)
Quarter: 2011Q3

REPORT INFORMATION
  Report Type: 
  Country: None (occurrence: None)
  Receive Date: 20110916
  Receipt Date: 20110909
  Transmission Date: 20111222
  Serious: Yes (Other)
  Sender: FDA-Public Use
  Company Number: 2011SP042758

PATIENT
  Age: 32 Year
  Sex: Female

DRUGS (1)
  1. IMPLANON [Suspect]
     Indication: CONTRACEPTION
     Dates: start: 20110902, end: 20110908

REACTIONS (5)
  - RASH ERYTHEMATOUS [None]
  - EYE PRURITUS [None]
  - SELF-MEDICATION [None]
  - EYE PAIN [None]
  - PRURITUS GENERALISED [None]
